FAERS Safety Report 18047789 (Version 3)
Quarter: 2021Q1

REPORT INFORMATION
  Report Type: Other
  Country: US (occurrence: US)
  Receive Date: 20200721
  Receipt Date: 20210218
  Transmission Date: 20210419
  Serious: Yes (Other)
  Sender: FDA-Public Use
  Company Number: US-ROCHE-2643222

PATIENT
  Sex: Female

DRUGS (3)
  1. OCREVUS [Suspect]
     Active Substance: OCRELIZUMAB
     Dosage: INFUSE 600 MG EVERY 6 MONTH AFTER DAY 15
     Route: 065
  2. OCREVUS [Suspect]
     Active Substance: OCRELIZUMAB
     Indication: RELAPSING-REMITTING MULTIPLE SCLEROSIS
     Dosage: DATE OF TREATMENT: 02/JAN/2019, 02/JUL/2019, 03/JAN/2020, 23/JUL/2020,
     Route: 065
     Dates: start: 20181218
  3. OCREVUS [Suspect]
     Active Substance: OCRELIZUMAB
     Dosage: INFUSE 300 MG DAY 1 AND 300 MG DAY 15
     Route: 065

REACTIONS (2)
  - Multiple sclerosis relapse [Unknown]
  - Staphylococcal infection [Not Recovered/Not Resolved]
